FAERS Safety Report 9648144 (Version 2)
Quarter: 2013Q4

REPORT INFORMATION
  Report Type: Report from Study
  Country: BR (occurrence: BR)
  Receive Date: 20131028
  Receipt Date: 20131028
  Transmission Date: 20140711
  Serious: Yes (Hospitalization, Other)
  Sender: FDA-Public Use
  Company Number: PHHY2013BR101793

PATIENT
  Sex: Female

DRUGS (5)
  1. DIOVAN HCT [Suspect]
     Indication: HYPERTENSION
     Dosage: 1 DF (320/ 12,5 MG) DAILY
  2. DIOVAN HCT [Suspect]
     Dosage: UNK UKN, UNK
  3. ARADOIS [Suspect]
  4. ZOMETA [Concomitant]
     Indication: NEOPLASM PROPHYLAXIS
     Dosage: 1 DF, UNK (EVERY MONTH)
     Route: 042
  5. THALIDOMIDE [Concomitant]
     Indication: NEOPLASM PROPHYLAXIS
     Dosage: 1 DF, UNK
     Route: 048

REACTIONS (2)
  - Plasma cell myeloma [Not Recovered/Not Resolved]
  - Blood pressure increased [Recovering/Resolving]
